FAERS Safety Report 6186722-3 (Version None)
Quarter: 2009Q2

REPORT INFORMATION
  Report Type: 
  Country: None (occurrence: None)
  Receive Date: 20090508
  Receipt Date: 20090508
  Transmission Date: 20091009
  Serious: Yes (Other)
  Sender: FDA-Public Use
  Company Number: None

PATIENT
  Sex: Female
  Weight: 37.6486 kg

DRUGS (1)
  1. FORTEO [Suspect]

REACTIONS (4)
  - BONE GRAFT [None]
  - PAIN [None]
  - RESORPTION BONE INCREASED [None]
  - TRANSPLANT FAILURE [None]
